FAERS Safety Report 11375904 (Version 2)
Quarter: 2015Q3

REPORT INFORMATION
  Report Type: Spontaneous
  Country: US (occurrence: US)
  Receive Date: 20150813
  Receipt Date: 20150930
  Transmission Date: 20151125
  Serious: Yes (Hospitalization, Other)
  Sender: FDA-Public Use
  Company Number: US-ABBVIE-15P-163-1440465-00

PATIENT
  Age: 20 Year
  Sex: Female
  Weight: 70 kg

DRUGS (5)
  1. DEPAKOTE [Suspect]
     Active Substance: DIVALPROEX SODIUM
     Indication: EPILEPSY
     Route: 065
  2. CELEBREX [Suspect]
     Active Substance: CELECOXIB
     Indication: SWELLING
  3. CELEBREX [Suspect]
     Active Substance: CELECOXIB
     Indication: PAIN
     Route: 048
     Dates: start: 20150804, end: 20150809
  4. TEGRETOL [Suspect]
     Active Substance: CARBAMAZEPINE
     Indication: PRODUCT USED FOR UNKNOWN INDICATION
     Route: 065
  5. PENCILLIN [Suspect]
     Active Substance: PENICILLIN
     Indication: PRODUCT USED FOR UNKNOWN INDICATION
     Route: 065

REACTIONS (12)
  - Balance disorder [Unknown]
  - Hyperaesthesia [Unknown]
  - Tremor [Unknown]
  - Pain [Unknown]
  - Movement disorder [Unknown]
  - Limb discomfort [Unknown]
  - Drug hypersensitivity [Unknown]
  - Dizziness [Unknown]
  - Seizure [Recovered/Resolved]
  - Disturbance in attention [Unknown]
  - Foot operation [Unknown]
  - Feeling abnormal [Unknown]

NARRATIVE: CASE EVENT DATE: 20150810
